FAERS Safety Report 16077881 (Version 1)
Quarter: 2019Q1

REPORT INFORMATION
  Report Type: Spontaneous
  Country: NL (occurrence: NL)
  Receive Date: 20190315
  Receipt Date: 20190315
  Transmission Date: 20190418
  Serious: Yes (Death, Hospitalization, Other)
  Sender: FDA-Public Use
  Company Number: NL-JNJFOC-20190318532

PATIENT
  Sex: Male

DRUGS (3)
  1. TEMAZEPAM. [Suspect]
     Active Substance: TEMAZEPAM
     Indication: PRODUCT USED FOR UNKNOWN INDICATION
     Route: 065
     Dates: end: 20171113
  2. TEMAZEPAM. [Suspect]
     Active Substance: TEMAZEPAM
     Indication: PRODUCT USED FOR UNKNOWN INDICATION
     Route: 065
     Dates: end: 2014
  3. TRAMADOL HYDROCHLORIDE. [Suspect]
     Active Substance: TRAMADOL HYDROCHLORIDE
     Indication: PRODUCT USED FOR UNKNOWN INDICATION
     Route: 065

REACTIONS (17)
  - Renal impairment [Fatal]
  - Haemoptysis [Fatal]
  - Pneumonia [Fatal]
  - Fracture [Fatal]
  - Hypotension [Fatal]
  - Cardiac failure [Fatal]
  - Delirium [Fatal]
  - Withdrawal syndrome [Fatal]
  - Gait disturbance [Fatal]
  - Diabetes mellitus [Fatal]
  - Nightmare [Fatal]
  - Pain in extremity [Fatal]
  - Death [Fatal]
  - Depressed level of consciousness [Fatal]
  - Fall [Fatal]
  - Hallucination [Fatal]
  - Haematoma [Fatal]

NARRATIVE: CASE EVENT DATE: 20180321
